FAERS Safety Report 5632593-0 (Version None)
Quarter: 2008Q1

REPORT INFORMATION
  Report Type: 
  Country: None (occurrence: None)
  Receive Date: 20080219
  Receipt Date: 20080212
  Transmission Date: 20080703
  Serious: Yes (Death, Hospitalization)
  Sender: FDA-Public Use
  Company Number: 231136K07USA

PATIENT
  Age: 27 Year
  Sex: Female

DRUGS (12)
  1. REBIF [Suspect]
     Indication: MULTIPLE SCLEROSIS
     Dosage: 44 MCG, 3 IN 1 WEEKS, SUBCUTANEOUS
     Route: 058
     Dates: start: 20030101, end: 20070106
  2. ORTHO TRI-CYCLEN [Concomitant]
  3. AMOXICILLIN [Concomitant]
  4. TRAMADOL (TRAMADOL /00599201/) [Concomitant]
  5. ZANAFLEX [Concomitant]
  6. TIGAN [Concomitant]
  7. IBUPROFEN [Concomitant]
  8. ZESTRIL [Concomitant]
  9. CALCIUM-CHOLECALCIFEROL [D3] (SANDOCAL /01429101/) [Concomitant]
  10. ASTRAGALUS EXTRACT (ALL OTHER NON-THERAPEUTIC PRODUCTS) [Concomitant]
  11. SIBERIAN GINSENG (ELEUTHEROCOCCUS SENTICOSUS) [Concomitant]
  12. DAILY MULTIPLE VITAMINS (DAILY MULTIVITAMIN) [Concomitant]

REACTIONS (18)
  - ARRHYTHMIA [None]
  - BLOOD PRESSURE SYSTOLIC DECREASED [None]
  - CARDIO-RESPIRATORY ARREST [None]
  - CARDIOMYOPATHY [None]
  - CIRCULATORY COLLAPSE [None]
  - CONGENITAL ANOMALY [None]
  - CONVULSION [None]
  - CULTURE URINE POSITIVE [None]
  - DRUG ABUSE [None]
  - ELECTROENCEPHALOGRAM ABNORMAL [None]
  - ESCHERICHIA INFECTION [None]
  - MOVEMENT DISORDER [None]
  - PYELONEPHRITIS ACUTE [None]
  - REFUSAL OF TREATMENT BY PATIENT [None]
  - SINUS TACHYCARDIA [None]
  - UNRESPONSIVE TO STIMULI [None]
  - VENTRICULAR EXTRASYSTOLES [None]
  - VENTRICULAR FIBRILLATION [None]
